FAERS Safety Report 12310700 (Version 1)
Quarter: 2016Q2

REPORT INFORMATION
  Report Type: Spontaneous
  Country: JP (occurrence: JP)
  Receive Date: 20160427
  Receipt Date: 20160427
  Transmission Date: 20160815
  Serious: Yes (Hospitalization, Other)
  Sender: FDA-Public Use
  Company Number: JP-TEVA-655041ISR

PATIENT
  Age: 56 Year
  Sex: Female

DRUGS (2)
  1. ETIZOLAM [Suspect]
     Active Substance: ETIZOLAM
     Indication: INTENTIONAL OVERDOSE
     Dosage: 48 TABLETS OF 0.5 MG
     Route: 065
  2. TIZANIDINE. [Suspect]
     Active Substance: TIZANIDINE
     Indication: INTENTIONAL OVERDOSE
     Dosage: 48 TABLETS OF 1MG
     Route: 065

REACTIONS (6)
  - Hypotension [Recovered/Resolved]
  - Sinus bradycardia [Recovered/Resolved]
  - Intentional overdose [Recovered/Resolved]
  - Altered state of consciousness [Recovered/Resolved]
  - Cardiotoxicity [Recovered/Resolved]
  - Sinus tachycardia [Recovered/Resolved]
